FAERS Safety Report 24900988 (Version 1)
Quarter: 2025Q1

REPORT INFORMATION
  Report Type: Spontaneous
  Country: US (occurrence: US)
  Receive Date: 20250129
  Receipt Date: 20250129
  Transmission Date: 20250408
  Serious: No
  Sender: PFIZER
  Company Number: US-PFIZER INC-202500018645

PATIENT
  Age: 66 Year
  Sex: Female

DRUGS (2)
  1. AZITHROMYCIN [Suspect]
     Active Substance: AZITHROMYCIN
     Indication: Lung disorder
  2. ALBUTEROL [Concomitant]
     Active Substance: ALBUTEROL
     Indication: Lung disorder

REACTIONS (1)
  - Therapeutic product effect incomplete [Unknown]
